FAERS Safety Report 14097948 (Version 1)
Quarter: 2017Q4

REPORT INFORMATION
  Report Type: Spontaneous
  Country: US (occurrence: US)
  Receive Date: 20171016
  Receipt Date: 20171016
  Transmission Date: 20180321
  Serious: No
  Sender: FDA-Public Use
  Company Number: US-AMGEN-USASP2016184405

PATIENT
  Age: 71 Year
  Sex: Female
  Weight: 57.6 kg

DRUGS (18)
  1. ALBUTEROL SULFATE. [Concomitant]
     Active Substance: ALBUTEROL SULFATE
  2. LEVEMIR [Concomitant]
     Active Substance: INSULIN DETEMIR
  3. CYCLOBENZAPRINE. [Concomitant]
     Active Substance: CYCLOBENZAPRINE
  4. SPIRIVA [Concomitant]
     Active Substance: TIOTROPIUM BROMIDE MONOHYDRATE
  5. PROLIA [Suspect]
     Active Substance: DENOSUMAB
     Indication: PRODUCT USED FOR UNKNOWN INDICATION
     Dosage: 60 MG, Q6MO
     Route: 058
     Dates: start: 20160613, end: 20161227
  6. TRAMADOL. [Concomitant]
     Active Substance: TRAMADOL
     Indication: GASTROOESOPHAGEAL REFLUX DISEASE
  7. ADVAIR HFA [Concomitant]
     Active Substance: FLUTICASONE PROPIONATE\SALMETEROL XINAFOATE
  8. CITRACAL BONE DENSITY BUILDER [Concomitant]
  9. GLIMEPIRIDE. [Concomitant]
     Active Substance: GLIMEPIRIDE
  10. OMEPRAZOLE. [Concomitant]
     Active Substance: OMEPRAZOLE
  11. PRAMIPEXOLE. [Concomitant]
     Active Substance: PRAMIPEXOLE
  12. PROVENTIL HFA [Concomitant]
     Active Substance: ALBUTEROL SULFATE
  13. SIMVASTATIN. [Concomitant]
     Active Substance: SIMVASTATIN
  14. ASPIR 81 [Concomitant]
  15. LISINOPRIL. [Concomitant]
     Active Substance: LISINOPRIL
  16. NATEGLINIDE. [Concomitant]
     Active Substance: NATEGLINIDE
  17. TRAMADOL. [Concomitant]
     Active Substance: TRAMADOL
     Indication: OESOPHAGITIS
  18. VITAMIN D2 [Concomitant]
     Active Substance: ERGOCALCIFEROL

REACTIONS (26)
  - Dyspnoea [Unknown]
  - Pharyngeal oedema [Unknown]
  - Rash papular [Unknown]
  - Hypersensitivity [Recovered/Resolved]
  - Rash [Recovering/Resolving]
  - Erythema [Unknown]
  - Lip swelling [Unknown]
  - Oropharyngeal pain [Unknown]
  - Rash pruritic [Unknown]
  - Swelling [Unknown]
  - Rash macular [Unknown]
  - Exfoliative rash [Unknown]
  - Swollen tongue [Unknown]
  - Pruritus [Unknown]
  - Urticaria [Recovered/Resolved]
  - Ear pain [Unknown]
  - Wheezing [Unknown]
  - Gingival discomfort [Unknown]
  - Arthritis [Unknown]
  - Dry skin [Unknown]
  - Skin lesion [Unknown]
  - Excoriation [Unknown]
  - Dysphagia [Unknown]
  - Pain [Unknown]
  - Arthralgia [Recovered/Resolved]
  - Back pain [Unknown]

NARRATIVE: CASE EVENT DATE: 201612
